FAERS Safety Report 23847695 (Version 1)
Quarter: 2024Q2

REPORT INFORMATION
  Report Type: Spontaneous
  Country: US (occurrence: None)
  Receive Date: 20240510
  Receipt Date: 20240510
  Transmission Date: 20240715
  Serious: No
  Sender: FDA-Public Use
  Company Number: None

PATIENT
  Age: 44 Year
  Sex: Male

DRUGS (2)
  1. AMBRISENTAN [Suspect]
     Active Substance: AMBRISENTAN
     Indication: Pulmonary hypertension
     Dosage: FREQUENCY : DAILY;?
     Route: 048
     Dates: start: 20230608
  2. TADALAFIL [Suspect]
     Active Substance: TADALAFIL

REACTIONS (6)
  - Dysphonia [None]
  - Cough [None]
  - Swelling face [None]
  - Dyspnoea [None]
  - Pericardial effusion [None]
  - Paralysis recurrent laryngeal nerve [None]

NARRATIVE: CASE EVENT DATE: 20240507
